FAERS Safety Report 6613279-2 (Version None)
Quarter: 2010Q1

REPORT INFORMATION
  Report Type: 
  Country: None (occurrence: None)
  Receive Date: 20100304
  Receipt Date: 20100217
  Transmission Date: 20100710
  Serious: Yes (Hospitalization)
  Sender: FDA-Public Use
  Company Number: PHHY2010JP01027

PATIENT
  Sex: Female
  Weight: 38 kg

DRUGS (4)
  1. LAMISIL [Suspect]
     Dosage: 125 MG DAILY
     Route: 048
     Dates: start: 20090523, end: 20091203
  2. OPALMON [Concomitant]
     Indication: COLLAGEN DISORDER
     Dosage: 10 UG, UNK
     Route: 048
  3. PREDONINE [Concomitant]
     Indication: COLLAGEN DISORDER
     Dosage: 5 MG
     Route: 048
  4. SELBEX [Concomitant]
     Dosage: 100 MG, UNK
     Route: 048

REACTIONS (9)
  - FACE OEDEMA [None]
  - FOCAL SEGMENTAL GLOMERULOSCLEROSIS [None]
  - GLOMERULONEPHRITIS MEMBRANOUS [None]
  - HYPERLIPIDAEMIA [None]
  - HYPOPROTEINAEMIA [None]
  - NEPHROTIC SYNDROME [None]
  - OEDEMA PERIPHERAL [None]
  - PLEURAL EFFUSION [None]
  - PROTEINURIA [None]
